FAERS Safety Report 4396799-3 (Version None)
Quarter: 2004Q3

REPORT INFORMATION
  Report Type: 
  Country: None (occurrence: None)
  Receive Date: 20040714
  Receipt Date: 20040629
  Transmission Date: 20050211
  Serious: Yes (Other)
  Sender: FDA-Public Use
  Company Number: PHBS2004BE08614

PATIENT
  Age: 53 Year
  Sex: Female

DRUGS (4)
  1. LAMISIL [Suspect]
     Indication: NAIL TINEA
     Dosage: 250 MG/D
     Route: 048
     Dates: start: 20040601, end: 20040601
  2. EFFEXOR [Suspect]
     Route: 065
  3. ZURCALE [Concomitant]
  4. LIVIAL [Concomitant]
     Dosage: 2.5 MG/D

REACTIONS (3)
  - DRUG INTERACTION [None]
  - PALPITATIONS [None]
  - VENTRICULAR EXTRASYSTOLES [None]
